FAERS Safety Report 11624366 (Version 1)
Quarter: 2015Q4

REPORT INFORMATION
  Report Type: Spontaneous
  Country: US (occurrence: US)
  Receive Date: 20151013
  Receipt Date: 20151013
  Transmission Date: 20160304
  Serious: No
  Sender: FDA-Public Use
  Company Number: US-TEVA-590964USA

PATIENT
  Sex: Female

DRUGS (1)
  1. OMEGA-3 ACIDS [Suspect]
     Active Substance: OMEGA-3 FATTY ACIDS

REACTIONS (3)
  - Constipation [Unknown]
  - Hypothyroidism [Unknown]
  - Vomiting [Unknown]
